FAERS Safety Report 10072487 (Version 1)
Quarter: 2014Q2

REPORT INFORMATION
  Report Type: Spontaneous
  Country: US (occurrence: US)
  Receive Date: 20140411
  Receipt Date: 20140411
  Transmission Date: 20141212
  Serious: No
  Sender: FDA-Public Use
  Company Number: US-BAYER-2014-052721

PATIENT
  Sex: Female

DRUGS (2)
  1. BEYAZ [Suspect]
     Indication: UNEVALUABLE EVENT
     Dosage: UNK
     Route: 048
     Dates: start: 20140313
  2. BEYAZ [Suspect]
     Indication: CONTRACEPTION

REACTIONS (3)
  - Inappropriate schedule of drug administration [None]
  - Menstruation irregular [Not Recovered/Not Resolved]
  - Fatigue [Not Recovered/Not Resolved]
